FAERS Safety Report 23640967 (Version 1)
Quarter: 2024Q1

REPORT INFORMATION
  Report Type: Spontaneous
  Country: US (occurrence: US)
  Receive Date: 20240318
  Receipt Date: 20240318
  Transmission Date: 20240410
  Serious: No
  Sender: FDA-Public Use
  Company Number: US-JNJFOC-20240306225

PATIENT

DRUGS (1)
  1. ROGAINE [Suspect]
     Active Substance: MINOXIDIL
     Indication: Madarosis
     Route: 061

REACTIONS (3)
  - Product use in unapproved indication [Unknown]
  - Product administered at inappropriate site [Unknown]
  - Therapeutic response unexpected [Unknown]
